FAERS Safety Report 10780276 (Version 1)
Quarter: 2015Q1

REPORT INFORMATION
  Report Type: Spontaneous
  Country: US (occurrence: US)
  Receive Date: 20150210
  Receipt Date: 20150210
  Transmission Date: 20150721
  Serious: No
  Sender: FDA-Public Use
  Company Number: US-GLAXOSMITHKLINE-A1074818A

PATIENT

DRUGS (1)
  1. TYKERB [Suspect]
     Active Substance: LAPATINIB DITOSYLATE
     Indication: BREAST CANCER
     Dosage: 250 MG TABLETS, 5 TABLETS PER DAY, TOTAL DAILY DOSE OF 1250 MG
     Route: 065

REACTIONS (7)
  - Dysphagia [Unknown]
  - Dehydration [Unknown]
  - Hospice care [Unknown]
  - Treatment failure [Unknown]
  - Condition aggravated [Unknown]
  - Regurgitation [Unknown]
  - Diarrhoea [Unknown]

NARRATIVE: CASE EVENT DATE: 20140517
